FAERS Safety Report 5569682-5 (Version None)
Quarter: 2007Q4

REPORT INFORMATION
  Report Type: 
  Country: None (occurrence: None)
  Receive Date: 20071220
  Receipt Date: 20071218
  Transmission Date: 20080405
  Serious: Yes (Hospitalization)
  Sender: FDA-Public Use
  Company Number: B0500529A

PATIENT
  Age: 47 Year
  Sex: Female
  Weight: 61.8 kg

DRUGS (2)
  1. LAPATINIB [Suspect]
     Route: 048
     Dates: start: 20071114
  2. CAPECITABINE [Suspect]
     Route: 048
     Dates: start: 20071114

REACTIONS (2)
  - HAEMOPTYSIS [None]
  - LOWER RESPIRATORY TRACT INFECTION [None]
